FAERS Safety Report 7717603-9 (Version None)
Quarter: 2011Q3

REPORT INFORMATION
  Report Type: 
  Country: None (occurrence: None)
  Receive Date: 20110830
  Receipt Date: 20110817
  Transmission Date: 20111222
  Serious: Yes (Death, Hospitalization)
  Sender: FDA-Public Use
  Company Number: DE-CELGENEUS-062-50794-11040189

PATIENT
  Age: 1 Year
  Sex: Female

DRUGS (1)
  1. VIDAZA [Suspect]
     Dosage: 19 MILLIGRAM
     Route: 050
     Dates: start: 20101101

REACTIONS (4)
  - CENTRAL NERVOUS SYSTEM NEOPLASM [None]
  - DRUG EFFECT DECREASED [None]
  - THROMBOCYTOPENIA [None]
  - INFECTION [None]
